FAERS Safety Report 16880458 (Version 1)
Quarter: 2019Q4

REPORT INFORMATION
  Report Type: Spontaneous
  Country: CO (occurrence: CO)
  Receive Date: 20191003
  Receipt Date: 20191003
  Transmission Date: 20200122
  Serious: Yes (Disabling)
  Sender: FDA-Public Use
  Company Number: CO-ROCHE-2415415

PATIENT
  Age: 57 Year
  Sex: Female

DRUGS (2)
  1. RITUXIMAB. [Suspect]
     Active Substance: RITUXIMAB
     Indication: PRODUCT USED FOR UNKNOWN INDICATION
     Route: 065
  2. XELJANZ [Concomitant]
     Active Substance: TOFACITINIB CITRATE
     Indication: RHEUMATOID ARTHRITIS
     Route: 048
     Dates: start: 2016

REACTIONS (13)
  - Gait disturbance [Unknown]
  - Abdominal pain upper [Unknown]
  - Diarrhoea [Unknown]
  - Joint swelling [Unknown]
  - Abdominal pain [Unknown]
  - Arthralgia [Unknown]
  - Asthenia [Unknown]
  - Hand fracture [Unknown]
  - Torticollis [Not Recovered/Not Resolved]
  - Arthropod bite [Unknown]
  - Joint warmth [Unknown]
  - Vomiting [Unknown]
  - Memory impairment [Unknown]

NARRATIVE: CASE EVENT DATE: 20160301
